FAERS Safety Report 6314423-7 (Version None)
Quarter: 2009Q3

REPORT INFORMATION
  Report Type: 
  Country: None (occurrence: None)
  Receive Date: 20090819
  Receipt Date: 20090810
  Transmission Date: 20100115
  Serious: Yes (Hospitalization, Other)
  Sender: FDA-Public Use
  Company Number: US-ROCHE-649734

PATIENT
  Age: 71 Year
  Sex: Female

DRUGS (1)
  1. BONIVA [Suspect]
     Indication: OSTEOPOROSIS
     Route: 048
     Dates: start: 20060101, end: 20090705

REACTIONS (7)
  - EROSIVE OESOPHAGITIS [None]
  - FALL [None]
  - MENISCUS LESION [None]
  - OESOPHAGITIS [None]
  - PAIN [None]
  - PANCREATITIS [None]
  - TIBIA FRACTURE [None]
